FAERS Safety Report 17266902 (Version 3)
Quarter: 2020Q1

REPORT INFORMATION
  Report Type: Spontaneous
  Country: US (occurrence: US)
  Receive Date: 20200114
  Receipt Date: 20200218
  Transmission Date: 20200409
  Serious: No
  Sender: FDA-Public Use
  Company Number: US-JNJFOC-20200111458

PATIENT
  Sex: Female

DRUGS (3)
  1. HALDOL DECANOATE [Suspect]
     Active Substance: HALOPERIDOL DECANOATE
     Indication: SCHIZOAFFECTIVE DISORDER
     Route: 030
     Dates: start: 20200103, end: 20200103
  2. HALDOL DECANOATE [Suspect]
     Active Substance: HALOPERIDOL DECANOATE
     Route: 030
     Dates: start: 20200209
  3. METFORMIN [Concomitant]
     Active Substance: METFORMIN HYDROCHLORIDE
     Indication: DIABETES MELLITUS
     Dosage: STARTED  2 YEARS AGO
     Route: 065

REACTIONS (9)
  - Malaise [Unknown]
  - Disturbance in attention [Not Recovered/Not Resolved]
  - Anger [Not Recovered/Not Resolved]
  - Headache [Not Recovered/Not Resolved]
  - Hypersomnia [Not Recovered/Not Resolved]
  - Bedridden [Not Recovered/Not Resolved]
  - Logorrhoea [Unknown]
  - Disturbance in social behaviour [Not Recovered/Not Resolved]
  - Impaired work ability [Not Recovered/Not Resolved]

NARRATIVE: CASE EVENT DATE: 202001
